FAERS Safety Report 6215225-2 (Version None)
Quarter: 2009Q2

REPORT INFORMATION
  Report Type: 
  Country: None (occurrence: None)
  Receive Date: 20090604
  Receipt Date: 20090529
  Transmission Date: 20091009
  Serious: Yes (Death, Hospitalization)
  Sender: FDA-Public Use
  Company Number: BR-NOVOPROD-287885

PATIENT

DRUGS (2)
  1. INSULIN DETEMIR PENFILL [Suspect]
     Indication: TYPE 1 DIABETES MELLITUS
     Dosage: 60 IU, UNK
     Route: 064
     Dates: start: 20080923
  2. NOVORAPID PENFILL 3.0 ML [Suspect]
     Indication: TYPE 1 DIABETES MELLITUS
     Dosage: 46 IU, QD
     Route: 064
     Dates: start: 20080923

REACTIONS (3)
  - DEATH NEONATAL [None]
  - INTRA-UTERINE DEATH [None]
  - MATERNAL DRUGS AFFECTING FOETUS [None]
